FAERS Safety Report 5943136-6 (Version None)
Quarter: 2008Q4

REPORT INFORMATION
  Report Type: 
  Country: None (occurrence: None)
  Receive Date: 20081106
  Receipt Date: 20081106
  Transmission Date: 20090506
  Serious: Yes (Other)
  Sender: FDA-Public Use
  Company Number: A0755119A

PATIENT
  Age: 61 Year
  Sex: Female

DRUGS (1)
  1. ALLI [Suspect]
     Indication: DRUG USE FOR UNKNOWN INDICATION
     Route: 048
     Dates: start: 20081102, end: 20081102

REACTIONS (9)
  - BACK PAIN [None]
  - BEDRIDDEN [None]
  - CHEST DISCOMFORT [None]
  - CHILLS [None]
  - DIZZINESS [None]
  - HEADACHE [None]
  - MYOCARDIAL INFARCTION [None]
  - PERIPHERAL COLDNESS [None]
  - VOMITING [None]
